FAERS Safety Report 16778228 (Version 1)
Quarter: 2019Q3

REPORT INFORMATION
  Report Type: Report from Study
  Country: None (occurrence: TW)
  Receive Date: 20190905
  Receipt Date: 20190905
  Transmission Date: 20191005
  Serious: Yes (Death)
  Sender: FDA-Public Use
  Company Number: TW-ABBVIE-19K-153-2912970-00

PATIENT
  Age: 74 Year
  Sex: Female

DRUGS (13)
  1. GLUCOBAY [Concomitant]
     Active Substance: ACARBOSE
     Indication: DIABETES MELLITUS
     Dosage: AC
     Route: 048
     Dates: start: 20160916, end: 20190731
  2. ARAVA [Concomitant]
     Active Substance: LEFLUNOMIDE
     Indication: RHEUMATOID ARTHRITIS
     Route: 048
     Dates: start: 20141007, end: 20190731
  3. PREDNISOLONE. [Concomitant]
     Active Substance: PREDNISOLONE
     Indication: RHEUMATOID ARTHRITIS
     Route: 048
     Dates: start: 20141007, end: 20190731
  4. EPINE [Concomitant]
     Indication: DEMENTIA
     Route: 048
     Dates: start: 20190221, end: 20190731
  5. PROPRANOLOL [Concomitant]
     Active Substance: PROPRANOLOL HYDROCHLORIDE
     Indication: CARDIOVASCULAR DISORDER
     Route: 048
     Dates: start: 20180707, end: 20190731
  6. HUMIRA [Suspect]
     Active Substance: ADALIMUMAB
     Indication: RHEUMATOID ARTHRITIS
     Route: 058
     Dates: end: 20190723
  7. HCQ [Concomitant]
     Active Substance: HYDROXYCHLOROQUINE SULFATE
     Indication: RHEUMATOID ARTHRITIS
     Route: 048
     Dates: start: 20180619, end: 20190731
  8. EURODIN [Concomitant]
     Indication: INSOMNIA
     Dosage: HS
     Route: 048
     Dates: start: 20190221, end: 20190731
  9. HUMIRA [Suspect]
     Active Substance: ADALIMUMAB
     Indication: RHEUMATOID ARTHRITIS
     Route: 058
     Dates: start: 20110503
  10. CELEBREX [Concomitant]
     Active Substance: CELECOXIB
     Indication: RHEUMATOID ARTHRITIS
     Route: 048
     Dates: start: 20180424, end: 20190731
  11. XARELTO FC [Concomitant]
     Indication: CARDIOVASCULAR DISORDER
     Route: 048
     Dates: start: 20171005, end: 20190731
  12. FLUITRAN [Concomitant]
     Active Substance: TRICHLORMETHIAZIDE
     Indication: HYPERTENSION
     Dosage: PC
     Route: 048
     Dates: start: 20171005, end: 20190731
  13. NEWMAZOLE [Concomitant]
     Indication: HYPERTHYROIDISM
     Route: 048
     Dates: start: 20170516, end: 20190731

REACTIONS (4)
  - Death [Fatal]
  - Arteriosclerosis [Unknown]
  - Scoliosis [Unknown]
  - Spinal osteoarthritis [Unknown]

NARRATIVE: CASE EVENT DATE: 20190129
